FAERS Safety Report 18849104 (Version 4)
Quarter: 2022Q1

REPORT INFORMATION
  Report Type: Report from Study
  Country: US (occurrence: US)
  Receive Date: 20210204
  Receipt Date: 20220107
  Transmission Date: 20220424
  Serious: Yes (Hospitalization)
  Sender: FDA-Public Use
  Company Number: US-JNJFOC-20210138537

PATIENT
  Age: 57 Year
  Sex: Female
  Weight: 49.940 kg

DRUGS (5)
  1. OPSUMIT [Suspect]
     Active Substance: MACITENTAN
     Indication: Pulmonary arterial hypertension
     Route: 048
     Dates: start: 201701
  2. REVATIO [Concomitant]
     Active Substance: SILDENAFIL CITRATE
     Route: 065
  3. TREPROSTINIL [Concomitant]
     Active Substance: TREPROSTINIL
  4. XARELTO [Concomitant]
     Active Substance: RIVAROXABAN
  5. ELIQUIS [Concomitant]
     Active Substance: APIXABAN

REACTIONS (9)
  - Vaginal haemorrhage [Recovered/Resolved]
  - Haemorrhage [Unknown]
  - Anaemia [Unknown]
  - Fluid retention [Unknown]
  - Dyspnoea [Not Recovered/Not Resolved]
  - Abdominal pain lower [Not Recovered/Not Resolved]
  - Adnexa uteri pain [Not Recovered/Not Resolved]
  - Asthenia [Recovered/Resolved]
  - Product dose omission issue [Unknown]

NARRATIVE: CASE EVENT DATE: 20210101
